FAERS Safety Report 23069906 (Version 4)
Quarter: 2024Q1

REPORT INFORMATION
  Report Type: Spontaneous
  Country: PK (occurrence: PK)
  Receive Date: 20231016
  Receipt Date: 20240124
  Transmission Date: 20240410
  Serious: Yes (Other)
  Sender: FDA-Public Use
  Company Number: PK-PFIZER INC-PV202300111538

PATIENT
  Age: 32 Year
  Sex: Female

DRUGS (4)
  1. SUTENT [Suspect]
     Active Substance: SUNITINIB MALATE
     Indication: Gastrointestinal stromal tumour
     Dosage: 50 MG, DAILY 4 WEEKS ON 2 WEEKS OFF
     Route: 048
     Dates: start: 202206
  2. SUTENT [Suspect]
     Active Substance: SUNITINIB MALATE
     Dosage: 50 MG, EVERY OTHER DAY
  3. SUTENT [Suspect]
     Active Substance: SUNITINIB MALATE
     Dosage: 50 MG
     Route: 048
     Dates: end: 202311
  4. ITOPRIDE [Concomitant]
     Active Substance: ITOPRIDE
     Dosage: 50 MG BEFORE MEAL -1+1+1

REACTIONS (6)
  - Paraneoplastic syndrome [Unknown]
  - Hypothyroidism [Unknown]
  - Second primary malignancy [Unknown]
  - Insulinoma [Unknown]
  - Hypoglycaemia [Unknown]
  - Off label use [Unknown]
